FAERS Safety Report 21944851 (Version 1)
Quarter: 2023Q1

REPORT INFORMATION
  Report Type: Spontaneous
  Country: ES (occurrence: ES)
  Receive Date: 20230202
  Receipt Date: 20230202
  Transmission Date: 20230417
  Serious: Yes (Hospitalization, Other)
  Sender: FDA-Public Use
  Company Number: None

PATIENT
  Age: 84 Year
  Sex: Male
  Weight: 71 kg

DRUGS (14)
  1. OLANZAPINE [Interacting]
     Active Substance: OLANZAPINE
     Indication: Agitation
     Dosage: 30 MILLIGRAM, 30 MG
     Route: 048
     Dates: start: 20220622, end: 20220704
  2. FUROSEMIDE [Interacting]
     Active Substance: FUROSEMIDE
     Indication: Hypertension
     Dosage: 40 MILLIGRAM, 40 MG
     Route: 048
     Dates: start: 20220620
  3. FLUCONAZOLE [Interacting]
     Active Substance: FLUCONAZOLE
     Indication: Pneumonia
     Dosage: 200 MILLIGRAM, 200 MG
     Route: 042
     Dates: start: 20220702, end: 20220704
  4. AMILORIDE HYDROCHLORIDE\HYDROCHLOROTHIAZIDE [Interacting]
     Active Substance: AMILORIDE HYDROCHLORIDE\HYDROCHLOROTHIAZIDE
     Indication: Hypertension
     Dosage: 1 TABLET
     Route: 048
     Dates: start: 20220620
  5. VANCOMYCIN [Concomitant]
     Active Substance: VANCOMYCIN
     Indication: Pneumonia
     Dosage: 1500 MILLIGRAM, QD
     Route: 042
     Dates: start: 20220702
  6. HIBOR [Concomitant]
     Indication: Prophylaxis
     Dosage: 2500
     Route: 058
     Dates: start: 20220620
  7. MAGNESIOBOI [Concomitant]
     Indication: Hypomagnesaemia
     Dosage: 4 TABLETS/DAY
     Route: 048
     Dates: start: 20220625
  8. ATORVASTATIN [Concomitant]
     Active Substance: ATORVASTATIN
     Indication: Acute myocardial infarction
     Dosage: 80 MILLIGRAM, 80 MG
     Route: 048
     Dates: start: 20220620
  9. ASPARTIC ACID\POTASSIUM ASCORBATE [Concomitant]
     Active Substance: ASPARTIC ACID\POTASSIUM ASCORBATE
     Indication: Hypokalaemia
     Dosage: 2 TABLETS/DAY
     Route: 048
     Dates: start: 20220625
  10. TICAGRELOR [Concomitant]
     Active Substance: TICAGRELOR
     Indication: Acute myocardial infarction
     Dosage: 180 MILLIGRAM, 180 MG
     Route: 048
     Dates: start: 20220620
  11. PIPERACILLIN SODIUM\TAZOBACTAM SODIUM [Concomitant]
     Active Substance: PIPERACILLIN SODIUM\TAZOBACTAM SODIUM
     Indication: Pneumonia
     Dosage: 4 G/8HOURS
     Route: 042
     Dates: start: 20220701
  12. MELATONIN [Concomitant]
     Active Substance: MELATONIN
     Indication: Insomnia
     Dosage: 4 MILLIGRAM, 4 MG
     Route: 048
     Dates: start: 20220629
  13. PANTOPRAZOLE SODIUM [Concomitant]
     Active Substance: PANTOPRAZOLE SODIUM
     Indication: Prophylaxis
     Dosage: 40 MILLIGRAM, 40 MG
     Route: 048
     Dates: start: 20220620
  14. ASPIRIN [Concomitant]
     Active Substance: ASPIRIN
     Indication: Acute myocardial infarction
     Dosage: 100 MILLIGRAM, 100 MG
     Route: 048
     Dates: start: 20220620

REACTIONS (3)
  - Anticholinergic syndrome [Recovered/Resolved]
  - Hyponatraemia [Recovered/Resolved]
  - Drug interaction [Unknown]

NARRATIVE: CASE EVENT DATE: 20220704
